FAERS Safety Report 8894699 (Version 1)
Quarter: 2012Q4

REPORT INFORMATION
  Report Type: 
  Country: SE (occurrence: SE)
  Receive Date: 20121108
  Receipt Date: 20121108
  Transmission Date: 20130627
  Serious: Yes (Hospitalization)
  Sender: FDA-Public Use
  Company Number: SE-PFIZER INC-2012271343

PATIENT
  Age: 56 Year
  Sex: Male
  Weight: 82.99 kg

DRUGS (12)
  1. GENOTROPIN [Suspect]
     Dosage: 0.4 mg, 1x/day,7 injections/week
     Route: 058
     Dates: start: 19960429
  2. LEVOTHYROXINE [Concomitant]
     Indication: THYROID DISORDER
     Dosage: UNK
     Dates: start: 19910901
  3. ATMOS [Concomitant]
     Indication: LUTEINIZING HORMONE DEFICIENCY
     Dosage: UNK
     Dates: start: 19970428
  4. ATMOS [Concomitant]
     Indication: TESTICULAR HYPOGONADISM
  5. ATMOS [Concomitant]
     Indication: FOLLICLE-STIMULATING HORMONE DEFICIENCY
  6. TESTOVIRON-DEPOT [Concomitant]
     Indication: LUTEINIZING HORMONE DEFICIENCY
     Dosage: UNK
     Dates: start: 19970615
  7. TESTOVIRON-DEPOT [Concomitant]
     Indication: TESTICULAR HYPOGONADISM
  8. TESTOVIRON-DEPOT [Concomitant]
     Indication: FOLLICLE-STIMULATING HORMONE DEFICIENCY
  9. HYDROCORTISONE [Concomitant]
     Indication: ACTH DECREASED
     Dosage: UNK
     Dates: start: 20030110
  10. TESTOSTERONE [Concomitant]
     Indication: LUTEINIZING HORMONE DEFICIENCY
     Dosage: UNK
     Dates: start: 19910901
  11. TESTOSTERONE [Concomitant]
     Indication: TESTICULAR HYPOGONADISM
  12. TESTOSTERONE [Concomitant]
     Indication: FOLLICLE-STIMULATING HORMONE DEFICIENCY

REACTIONS (1)
  - Neoplasm [Recovered/Resolved]
